FAERS Safety Report 13398489 (Version 1)
Quarter: 2017Q2

REPORT INFORMATION
  Report Type: Spontaneous
  Country: US (occurrence: US)
  Receive Date: 20170403
  Receipt Date: 20170403
  Transmission Date: 20170830
  Serious: Yes (Other)
  Sender: FDA-Public Use
  Company Number: US-VIFOR (INTERNATIONAL) INC.-VIT-2017-03440

PATIENT
  Sex: Female

DRUGS (21)
  1. VELTASSA [Suspect]
     Active Substance: PATIROMER
     Indication: HYPERKALAEMIA
     Route: 048
     Dates: start: 20160524
  2. LEVEMIR [Concomitant]
     Active Substance: INSULIN DETEMIR
  3. BENADRYL ALLERGY [Concomitant]
     Active Substance: DIPHENHYDRAMINE HYDROCHLORIDE
  4. CYCLOBENZAPRINE. [Concomitant]
     Active Substance: CYCLOBENZAPRINE
  5. VASCULERA [Concomitant]
  6. RANITIDINE HYDROCHLORIDE. [Concomitant]
     Active Substance: RANITIDINE HYDROCHLORIDE
  7. ASPIR-81 [Concomitant]
     Active Substance: ASPIRIN
  8. HUMALOG [Concomitant]
     Active Substance: INSULIN LISPRO
  9. LASIX [Concomitant]
     Active Substance: FUROSEMIDE
  10. LINZESS [Concomitant]
     Active Substance: LINACLOTIDE
  11. MELATONIN [Concomitant]
     Active Substance: MELATONIN
  12. CRANBERRY. [Concomitant]
     Active Substance: CRANBERRY
  13. AMIODARONE HYDROCHLORIDE. [Concomitant]
     Active Substance: AMIODARONE HYDROCHLORIDE
  14. AMLODIPINE BESILATE [Concomitant]
     Active Substance: AMLODIPINE BESYLATE
  15. BENAZEPRIL HYDROCHLORIDE. [Concomitant]
     Active Substance: BENAZEPRIL HYDROCHLORIDE
  16. FIBER [Concomitant]
     Active Substance: PSYLLIUM HUSK
  17. MAGNESIUM ASPARTATE [Concomitant]
     Active Substance: MAGNESIUM ASPARTATE
  18. PIOGLITAZONE HYDROCHLORIDE. [Concomitant]
     Active Substance: PIOGLITAZONE HYDROCHLORIDE
  19. STOOL SOFTENER (DOCUSATE) [Concomitant]
     Active Substance: DOCUSATE
  20. ARMOUR THYROID [Concomitant]
     Active Substance: THYROID, PORCINE
  21. HYDRALAZINE HYDROCHLORIDE. [Concomitant]
     Active Substance: HYDRALAZINE HYDROCHLORIDE

REACTIONS (1)
  - Limb operation [Unknown]
